FAERS Safety Report 8932051 (Version 1)
Quarter: 2012Q4

REPORT INFORMATION
  Report Type: 
  Country: CO (occurrence: CO)
  Receive Date: 20121128
  Receipt Date: 20121128
  Transmission Date: 20130627
  Serious: Yes (Other)
  Sender: FDA-Public Use
  Company Number: CO-PFIZER INC-2012294917

PATIENT
  Age: 11 Year
  Sex: Male

DRUGS (2)
  1. GENOTROPIN [Suspect]
     Indication: ACHONDROPLASIA
     Dosage: 4 days at 1.8mg and 3 days at 1.6mg
     Route: 058
     Dates: start: 2003
  2. GENOTROPIN [Suspect]
     Indication: DWARFISM

REACTIONS (3)
  - Penis disorder [Unknown]
  - Umbilical hernia [Unknown]
  - Off label use [Unknown]
